FAERS Safety Report 5715828-5 (Version None)
Quarter: 2008Q2

REPORT INFORMATION
  Report Type: 
  Country: None (occurrence: None)
  Receive Date: 20080424
  Receipt Date: 20080414
  Transmission Date: 20081010
  Serious: Yes (Hospitalization)
  Sender: FDA-Public Use
  Company Number: US-NOVOPROD-254432

PATIENT
  Sex: Male
  Weight: 68.934 kg

DRUGS (7)
  1. NOVOLOG [Suspect]
     Indication: TYPE 1 DIABETES MELLITUS
     Dosage: 18-20 IU, TID
     Route: 058
     Dates: start: 20030424, end: 20030817
  2. NOVOLOG [Suspect]
     Dosage: 45.5 IU
     Route: 058
     Dates: start: 20030818, end: 20030819
  3. NOVOLOG [Suspect]
     Dosage: 30 - 35 IU, TID
     Route: 058
     Dates: start: 20030826
  4. LANTUS [Suspect]
     Indication: TYPE 1 DIABETES MELLITUS
     Dosage: 18 IU, QD
     Route: 058
     Dates: start: 20021219, end: 20030801
  5. LANTUS [Suspect]
     Dosage: 18 IU, QD
     Route: 058
     Dates: start: 20030826
  6. VALSARTAN [Concomitant]
     Indication: ILL-DEFINED DISORDER
     Route: 048
     Dates: start: 20020123
  7. VITAMIN C                          /00008001/ [Concomitant]
     Indication: ILL-DEFINED DISORDER
     Dosage: UNK, UNK
     Route: 048
     Dates: start: 20020901

REACTIONS (2)
  - HYPOGLYCAEMIA [None]
  - MENTAL STATUS CHANGES [None]
